FAERS Safety Report 4971327-X (Version None)
Quarter: 2006Q2

REPORT INFORMATION
  Report Type: 
  Country: None (occurrence: None)
  Receive Date: 20060413
  Receipt Date: 20060404
  Transmission Date: 20061013
  Serious: Yes (Death, Hospitalization, Disabling, Other)
  Sender: FDA-Public Use
  Company Number: PT-JNJFOC-20040300243

PATIENT
  Sex: Male

DRUGS (8)
  1. REMICADE [Suspect]
     Indication: RHEUMATOID ARTHRITIS
     Route: 042
  2. METHOTREXATE [Concomitant]
  3. FLURBIPROFEN [Concomitant]
     Dosage: 100MG - 200MG DAILY
  4. CALCIUM GLUCONATE [Concomitant]
  5. MISOPROSTOL [Concomitant]
  6. FOLIFER [Concomitant]
  7. FOLIFER [Concomitant]
  8. PREDNISONE [Concomitant]

REACTIONS (1)
  - DISSEMINATED TUBERCULOSIS [None]
